FAERS Safety Report 10079908 (Version 1)
Quarter: 2014Q2

REPORT INFORMATION
  Report Type: Spontaneous
  Country: US (occurrence: US)
  Receive Date: 20140415
  Receipt Date: 20140415
  Transmission Date: 20141212
  Serious: No
  Sender: FDA-Public Use
  Company Number: US-009507513-1404USA007964

PATIENT
  Age: 48 Year
  Sex: Female

DRUGS (1)
  1. PEGINTRON [Suspect]
     Dosage: 1 STANDARD DOSE OF 1, 120 MICROGRAM WEEKLY
     Route: 058

REACTIONS (3)
  - Inappropriate schedule of drug administration [Unknown]
  - Product quality issue [Unknown]
  - No adverse event [Unknown]
